FAERS Safety Report 18344049 (Version 3)
Quarter: 2025Q4

REPORT INFORMATION
  Report Type: Spontaneous
  Country: EU (occurrence: EU)
  Receive Date: 20201005
  Receipt Date: 20251028
  Transmission Date: 20260118
  Serious: Yes (Other)
  Sender: MYLAN
  Company Number: EU-SUN PHARMACEUTICAL INDUSTRIES LTD-2020R1-261287

PATIENT
  Age: 38 Year
  Sex: Female

DRUGS (3)
  1. PREGABALIN [Suspect]
     Active Substance: PREGABALIN
     Indication: Anxiety
     Dosage: 800 MILLIGRAM, QD
  2. PREGABALIN [Suspect]
     Active Substance: PREGABALIN
     Dosage: UNK, QD (DOSE INCREASED)
  3. PREGABALIN [Suspect]
     Active Substance: PREGABALIN
     Dosage: UNK (DOSE DECREASED)

REACTIONS (3)
  - Euphoric mood [Unknown]
  - Drug withdrawal syndrome [Unknown]
  - Drug abuse [Unknown]
